FAERS Safety Report 7470066-3 (Version None)
Quarter: 2011Q2

REPORT INFORMATION
  Report Type: 
  Country: None (occurrence: None)
  Receive Date: 20110510
  Receipt Date: 20110429
  Transmission Date: 20111010
  Serious: Yes (Death)
  Sender: FDA-Public Use
  Company Number: US-CELGENEUS-163-21880-11043782

PATIENT
  Sex: Female

DRUGS (7)
  1. ALBUTEROL [Concomitant]
     Dosage: 90 MICROGRAM
     Route: 065
  2. REVLIMID [Suspect]
     Indication: MULTIPLE MYELOMA
     Dosage: 25 MILLIGRAM
     Route: 048
     Dates: start: 20100701
  3. NORVASC [Concomitant]
     Dosage: 5 MILLIGRAM
     Route: 048
  4. ACTOS [Concomitant]
     Dosage: 15 MILLIGRAM
     Route: 048
  5. DEXAMETHASONE [Concomitant]
     Dosage: 4 MILLIGRAM
     Route: 048
  6. THEOPHYLLINE [Concomitant]
     Dosage: 100 MILLIGRAM
     Route: 048
  7. NEXIUM [Concomitant]
     Dosage: 40 MILLIGRAM
     Route: 048

REACTIONS (1)
  - DEATH [None]
